FAERS Safety Report 16066614 (Version 1)
Quarter: 2019Q1

REPORT INFORMATION
  Report Type: Report from Study
  Country: US (occurrence: US)
  Receive Date: 20190313
  Receipt Date: 20190313
  Transmission Date: 20190418
  Serious: Yes (Hospitalization)
  Sender: FDA-Public Use
  Company Number: US-JNJFOC-20190306208

PATIENT
  Sex: Male
  Weight: 99 kg

DRUGS (4)
  1. ABIRATERONE ACETATE. [Suspect]
     Active Substance: ABIRATERONE ACETATE
     Indication: PROSTATE CANCER METASTATIC
     Route: 048
  2. EXCEDRIN PM [Suspect]
     Active Substance: ACETAMINOPHEN\DIPHENHYDRAMINE\DIPHENHYDRAMINE CITRATE
     Indication: PRODUCT USED FOR UNKNOWN INDICATION
     Route: 065
  3. PREDNISONE. [Suspect]
     Active Substance: PREDNISONE
     Indication: PROSTATE CANCER METASTATIC
     Route: 048
  4. ENZALUTAMIDE [Suspect]
     Active Substance: ENZALUTAMIDE
     Indication: PROSTATE CANCER METASTATIC
     Route: 048

REACTIONS (5)
  - Haemoglobin decreased [Unknown]
  - Upper gastrointestinal haemorrhage [Recovering/Resolving]
  - Oesophageal ulcer [Unknown]
  - Gastrointestinal erosion [Unknown]
  - Duodenal polyp [Unknown]

NARRATIVE: CASE EVENT DATE: 2018
